FAERS Safety Report 8970024 (Version 1)
Quarter: 2012Q4

REPORT INFORMATION
  Report Type: 
  Country: US (occurrence: US)
  Receive Date: 20121217
  Receipt Date: 20121217
  Transmission Date: 20130627
  Serious: No
  Sender: FDA-Public Use
  Company Number: US-PFIZER INC-2012316838

PATIENT
  Age: 53 Year
  Sex: Male
  Weight: 109 kg

DRUGS (2)
  1. VIAGRA [Suspect]
     Indication: ERECTILE DYSFUNCTION
     Dosage: 50 mg, single
     Dates: start: 20121202
  2. TRICOR [Concomitant]
     Dosage: 145 mg, daily

REACTIONS (1)
  - Drug ineffective [Unknown]
